FAERS Safety Report 9065652 (Version 1)
Quarter: 2013Q1

REPORT INFORMATION
  Report Type: Report from Study
  Country: US (occurrence: US)
  Receive Date: 20130130
  Receipt Date: 20130130
  Transmission Date: 20140127
  Serious: No
  Sender: FDA-Public Use
  Company Number: US-ABBOTT-12P-163-0974980-00

PATIENT
  Age: 32 None
  Sex: Female

DRUGS (4)
  1. HUMIRA [Suspect]
     Indication: CROHN^S DISEASE
     Dates: start: 20120424
  2. ACYCLOVIR [Concomitant]
     Indication: PROPHYLAXIS
     Dosage: DAILY
     Route: 048
  3. OMEGA 3 [Concomitant]
     Indication: SUPPLEMENTATION THERAPY
  4. B-12 [Concomitant]
     Indication: SUPPLEMENTATION THERAPY

REACTIONS (3)
  - Incorrect dose administered [Not Recovered/Not Resolved]
  - Wrong technique in drug usage process [Unknown]
  - Injection site pain [Not Recovered/Not Resolved]
